FAERS Safety Report 11464437 (Version 1)
Quarter: 2015Q3

REPORT INFORMATION
  Report Type: Spontaneous
  Country: US (occurrence: US)
  Receive Date: 20150831
  Receipt Date: 20150831
  Transmission Date: 20151125
  Serious: Yes (Hospitalization, Other)
  Sender: FDA-Public Use
  Company Number: US-ELI_LILLY_AND_COMPANY-US201107001962

PATIENT
  Age: 70 Year
  Sex: Female

DRUGS (4)
  1. ZOLOFT                                  /USA/ [Concomitant]
     Dosage: UNK
  2. ZOCOR [Concomitant]
     Active Substance: SIMVASTATIN
     Dosage: UNK
  3. CYMBALTA [Suspect]
     Active Substance: DULOXETINE HYDROCHLORIDE
     Indication: PAIN
     Dosage: 60 MG, QD
     Dates: start: 20110315, end: 20110319
  4. RESTORIL [Concomitant]
     Active Substance: TEMAZEPAM
     Dosage: UNK

REACTIONS (11)
  - Syncope [Recovered/Resolved]
  - Heart rate increased [Recovered/Resolved]
  - Contusion [Recovered/Resolved]
  - Feeling hot [Recovered/Resolved]
  - Dizziness [Recovered/Resolved]
  - Foot fracture [Recovered/Resolved]
  - Heart rate irregular [Recovered/Resolved]
  - Supraventricular tachycardia [Recovered/Resolved]
  - Abnormal behaviour [Recovered/Resolved]
  - Fall [Recovered/Resolved]
  - Road traffic accident [Unknown]

NARRATIVE: CASE EVENT DATE: 20110320
